FAERS Safety Report 10010632 (Version 2)
Quarter: 2014Q2

REPORT INFORMATION
  Report Type: Other
  Country: GB (occurrence: GB)
  Receive Date: 20140314
  Receipt Date: 20140521
  Transmission Date: 20141212
  Serious: Yes (Hospitalization, Other)
  Sender: FDA-Public Use
  Company Number: GB-LUPIN PHARMACEUTICALS INC.-E2B_00001798

PATIENT
  Age: 21 Year
  Sex: Female
  Weight: 84 kg

DRUGS (13)
  1. QUETIAPINE [Suspect]
     Indication: PRODUCT USED FOR UNKNOWN INDICATION
     Route: 065
     Dates: start: 201311, end: 201401
  2. CITALOPRAM [Suspect]
     Indication: DEPRESSION
     Route: 065
     Dates: start: 201302
  3. CITALOPRAM [Suspect]
     Indication: OBSESSIVE RUMINATION
  4. RISPERIDONE [Suspect]
     Indication: AGITATION
     Route: 065
     Dates: start: 201310
  5. ATOMOXETINE HYDROCHLORIDE [Suspect]
     Indication: ATTENTION DEFICIT/HYPERACTIVITY DISORDER
     Route: 048
     Dates: start: 20121002
  6. ATOMOXETINE HYDROCHLORIDE [Suspect]
     Route: 048
     Dates: start: 201211
  7. ATOMOXETINE HYDROCHLORIDE [Suspect]
     Route: 048
     Dates: start: 201301
  8. ATOMOXETINE HYDROCHLORIDE [Suspect]
     Route: 048
     Dates: start: 201305
  9. ATOMOXETINE HYDROCHLORIDE [Suspect]
     Route: 048
     Dates: start: 201308
  10. ATOMOXETINE HYDROCHLORIDE [Suspect]
     Route: 048
     Dates: start: 201310, end: 201310
  11. ATOMOXETINE HYDROCHLORIDE [Suspect]
     Route: 048
     Dates: start: 201311, end: 201312
  12. CIRCADIN [Concomitant]
     Indication: PRODUCT USED FOR UNKNOWN INDICATION
     Route: 065
     Dates: start: 201306
  13. SERTRALINE [Concomitant]
     Indication: AGITATION
     Route: 065
     Dates: start: 201310

REACTIONS (4)
  - Bipolar I disorder [Not Recovered/Not Resolved]
  - Sedation [Not Recovered/Not Resolved]
  - Paranoia [Not Recovered/Not Resolved]
  - Treatment noncompliance [Unknown]
